FAERS Safety Report 17986354 (Version 1)
Quarter: 2020Q3

REPORT INFORMATION
  Report Type: Spontaneous
  Country: FR (occurrence: FR)
  Receive Date: 20200706
  Receipt Date: 20200706
  Transmission Date: 20201103
  Serious: Yes (Death)
  Sender: FDA-Public Use
  Company Number: FR-NAPPMUNDI-GBR-2020-0077534

PATIENT
  Age: 84 Year
  Sex: Male

DRUGS (2)
  1. OXYNORM [Concomitant]
     Active Substance: OXYCODONE HYDROCHLORIDE
     Dosage: UNK (NON ADMINISTRE)
  2. OXYNORM [Suspect]
     Active Substance: OXYCODONE HYDROCHLORIDE
     Indication: PRODUCT USED FOR UNKNOWN INDICATION
     Dosage: UNK (STRENGTH 50 MG/ML)
     Route: 042
     Dates: start: 20200606, end: 20200607

REACTIONS (3)
  - Incorrect dose administered [Fatal]
  - Death [Fatal]
  - Product dispensing error [Fatal]

NARRATIVE: CASE EVENT DATE: 202006
